FAERS Safety Report 12223719 (Version 1)
Quarter: 2016Q1

REPORT INFORMATION
  Report Type: Spontaneous
  Country: None (occurrence: US)
  Receive Date: 20160330
  Receipt Date: 20160330
  Transmission Date: 20160526
  Serious: No
  Sender: FDA-Public Use
  Company Number: US-MERZ NORTH AMERICA, INC.-15MRZ-00661

PATIENT
  Sex: Female
  Weight: 59.02 kg

DRUGS (1)
  1. ASCLERA [Suspect]
     Active Substance: POLIDOCANOL

REACTIONS (1)
  - Accidental exposure to product [None]
